FAERS Safety Report 6504571-0 (Version None)
Quarter: 2009Q4

REPORT INFORMATION
  Report Type: 
  Country: None (occurrence: None)
  Receive Date: 20091215
  Receipt Date: 20091208
  Transmission Date: 20100525
  Serious: Yes (Other)
  Sender: FDA-Public Use
  Company Number: 2009SP040768

PATIENT
  Sex: Female

DRUGS (1)
  1. DRIXORAL COLD AND ALLERGY TABS (6 MG) [Suspect]
     Indication: DRUG USE FOR UNKNOWN INDICATION
     Dosage: PO
     Route: 048

REACTIONS (1)
  - PSYCHOTIC DISORDER [None]
